FAERS Safety Report 14290318 (Version 3)
Quarter: 2018Q2

REPORT INFORMATION
  Report Type: Spontaneous
  Country: JP (occurrence: JP)
  Receive Date: 20171215
  Receipt Date: 20180404
  Transmission Date: 20180711
  Serious: Yes (Hospitalization, Disabling, Other)
  Sender: FDA-Public Use
  Company Number: JP-BRISTOL-MYERS SQUIBB COMPANY-BMS-2017-113034

PATIENT
  Age: 66 Year
  Sex: Female

DRUGS (1)
  1. OPDIVO [Suspect]
     Active Substance: NIVOLUMAB
     Indication: HODGKIN^S DISEASE
     Dosage: 3 MG/KG, Q2WK
     Route: 041
     Dates: start: 20171030

REACTIONS (3)
  - Haemolytic anaemia [Recovered/Resolved]
  - Pleural effusion [Recovered/Resolved]
  - Acquired thalassaemia [Unknown]

NARRATIVE: CASE EVENT DATE: 20171125
